FAERS Safety Report 18882038 (Version 2)
Quarter: 2021Q2

REPORT INFORMATION
  Report Type: Spontaneous
  Country: SE (occurrence: SE)
  Receive Date: 20210212
  Receipt Date: 20210529
  Transmission Date: 20210717
  Serious: Yes (Hospitalization)
  Sender: FDA-Public Use
  Company Number: SE-ROCHE-2767601

PATIENT
  Age: 31 Year
  Sex: Female

DRUGS (1)
  1. MABTHERA [Suspect]
     Active Substance: RITUXIMAB
     Indication: MULTIPLE SCLEROSIS
     Route: 065
     Dates: start: 20161214

REACTIONS (4)
  - Cystitis interstitial [Not Recovered/Not Resolved]
  - Incontinence [Not Recovered/Not Resolved]
  - Ureaplasma infection [Not Recovered/Not Resolved]
  - Vulvovaginitis [Not Recovered/Not Resolved]

NARRATIVE: CASE EVENT DATE: 2019
